FAERS Safety Report 18377845 (Version 1)
Quarter: 2020Q4

REPORT INFORMATION
  Report Type: Spontaneous
  Country: US (occurrence: US)
  Receive Date: 20201013
  Receipt Date: 20201013
  Transmission Date: 20210114
  Serious: No
  Sender: FDA-Public Use
  Company Number: US-MICRO LABS LIMITED-ML2020-02721

PATIENT
  Age: 71 Year
  Sex: Male
  Weight: 90.8 kg

DRUGS (1)
  1. DORZOLAMIDE/TIMOLOL [Suspect]
     Active Substance: DORZOLAMIDE\TIMOLOL
     Indication: INTRAOCULAR PRESSURE INCREASED
     Dosage: ONE DROP TWICE A DAY IN RIGHT EYE
     Route: 047
     Dates: start: 20200902

REACTIONS (4)
  - Eye pruritus [Unknown]
  - Eye pain [Unknown]
  - Eye irritation [Unknown]
  - Vision blurred [Unknown]

NARRATIVE: CASE EVENT DATE: 202009
